FAERS Safety Report 5008293-7 (Version None)
Quarter: 2006Q2

REPORT INFORMATION
  Report Type: 
  Country: None (occurrence: None)
  Receive Date: 20060523
  Receipt Date: 20051102
  Transmission Date: 20061013
  Serious: Yes (Hospitalization)
  Sender: FDA-Public Use
  Company Number: SE-AMGEN-UK154701

PATIENT
  Sex: Female

DRUGS (12)
  1. MIMPARA [Suspect]
     Indication: DRUG USE FOR UNKNOWN INDICATION
     Route: 048
     Dates: start: 20050425, end: 20050708
  2. RENAGEL [Concomitant]
     Route: 065
  3. ATARAX [Concomitant]
     Route: 065
  4. LEVAXIN [Concomitant]
     Route: 065
  5. FOLACIN [Concomitant]
     Route: 065
  6. ACETAMINOPHEN [Concomitant]
     Route: 065
  7. BEHEPAN [Concomitant]
     Route: 065
  8. DISTALGESIC [Concomitant]
     Route: 065
  9. STESOLID [Concomitant]
     Route: 065
  10. ORALOVITE [Concomitant]
     Route: 065
  11. VITAMIN B COMPLEX WITH C [Concomitant]
     Route: 065
  12. SODIUM PICOSULFATE [Concomitant]
     Route: 065

REACTIONS (1)
  - MANIA [None]
